FAERS Safety Report 21596965 (Version 2)
Quarter: 2022Q4

REPORT INFORMATION
  Report Type: Report from Study
  Country: US (occurrence: US)
  Receive Date: 20221115
  Receipt Date: 20221117
  Transmission Date: 20230112
  Serious: No
  Sender: FDA-Public Use
  Company Number: US-002147023-NVSC2022US257134

PATIENT
  Sex: Female

DRUGS (2)
  1. GLATOPA [Suspect]
     Active Substance: GLATIRAMER ACETATE
     Indication: Multiple sclerosis
     Dosage: 40 MG
     Route: 058
  2. GLATOPA [Suspect]
     Active Substance: GLATIRAMER ACETATE
     Dosage: 20 MG
     Route: 065

REACTIONS (3)
  - Fear of injection [Unknown]
  - Product dispensing error [Unknown]
  - Wrong device used [Unknown]
